FAERS Safety Report 8790901 (Version 1)
Quarter: 2012Q4

REPORT INFORMATION
  Report Type: Spontaneous
  Country: US (occurrence: None)
  Receive Date: 20120912
  Receipt Date: 20120912
  Transmission Date: 20130627
  Serious: Yes (Life-Threatening)
  Sender: FDA-Public Use
  Company Number: None

PATIENT
  Sex: Female
  Weight: 89.36 kg

DRUGS (2)
  1. GABAPENTIN [Suspect]
     Indication: MIGRAINE
     Dosage: 100 MG 1 Q HS PO
     Route: 048
     Dates: start: 20120909
  2. GABAPENTIN [Suspect]
     Indication: MIGRAINE
     Dates: start: 20120910

REACTIONS (2)
  - Dizziness [None]
  - Pharyngeal oedema [None]
